FAERS Safety Report 5039606-8 (Version None)
Quarter: 2006Q2

REPORT INFORMATION
  Report Type: 
  Country: None (occurrence: None)
  Receive Date: 20060601
  Receipt Date: 20060120
  Transmission Date: 20061013
  Serious: No
  Sender: FDA-Public Use
  Company Number: 2006PV007404

PATIENT
  Age: 57 Year
  Sex: Female
  Weight: 120.2032 kg

DRUGS (3)
  1. BYETTA [Suspect]
     Indication: DIABETES MELLITUS NON-INSULIN-DEPENDENT
     Dosage: 5 MCG; BID; SC
     Route: 058
     Dates: start: 20060106
  2. GLUCOPHAGE [Concomitant]
  3. ACTOS /USA/ [Concomitant]

REACTIONS (4)
  - ANOREXIA [None]
  - DYSPEPSIA [None]
  - EARLY SATIETY [None]
  - ERUCTATION [None]
